FAERS Safety Report 19461290 (Version 1)
Quarter: 2021Q2

REPORT INFORMATION
  Report Type: Spontaneous
  Country: FR (occurrence: FR)
  Receive Date: 20210625
  Receipt Date: 20210625
  Transmission Date: 20210717
  Serious: Yes (Other)
  Sender: FDA-Public Use
  Company Number: FR-PFIZER INC-2021709378

PATIENT
  Age: 52 Year
  Sex: Male

DRUGS (1)
  1. BOSULIF [Suspect]
     Active Substance: BOSUTINIB MONOHYDRATE
     Indication: CHRONIC MYELOID LEUKAEMIA
     Dosage: 300 MG, DAILY

REACTIONS (5)
  - Aspartate aminotransferase increased [Unknown]
  - Drug-induced liver injury [Unknown]
  - Hepatic cytolysis [Not Recovered/Not Resolved]
  - Creatinine renal clearance decreased [Unknown]
  - Alanine aminotransferase increased [Unknown]
